FAERS Safety Report 9002684 (Version 2)
Quarter: 2013Q1

REPORT INFORMATION
  Report Type: Spontaneous
  Country: US (occurrence: US)
  Receive Date: 20130107
  Receipt Date: 20130122
  Transmission Date: 20140127
  Serious: No
  Sender: FDA-Public Use
  Company Number: US-B.I. PHARMACEUTICALS,INC./RIDGEFIELD-2013-BI-00169BP

PATIENT
  Age: 97 Year
  Sex: Male
  Weight: 100 kg

DRUGS (2)
  1. COMBIVENT [Suspect]
     Indication: EMPHYSEMA
     Route: 055
     Dates: start: 201201
  2. PROZAC [Concomitant]
     Indication: ANXIETY

REACTIONS (2)
  - Drug ineffective [Not Recovered/Not Resolved]
  - Product quality issue [Not Recovered/Not Resolved]
